FAERS Safety Report 14126420 (Version 3)
Quarter: 2018Q2

REPORT INFORMATION
  Report Type: Not Available
  Country: US (occurrence: US)
  Receive Date: 20171025
  Receipt Date: 20180420
  Transmission Date: 20180711
  Serious: No
  Sender: FDA-Public Use
  Company Number: US-NEUROCRINE BIOSCIENCES INC.-2017NBI01041

PATIENT
  Age: 77 Year
  Sex: Male
  Weight: 69.92 kg

DRUGS (14)
  1. UNISOM SLEEPTABS [Concomitant]
     Active Substance: DOXYLAMINE SUCCINATE
     Indication: SLEEP DISORDER
  2. STOOL SOFTENER (DOCUSATE) [Concomitant]
     Active Substance: DOCUSATE
  3. TAMSULOSIN [Concomitant]
     Active Substance: TAMSULOSIN
     Indication: PROSTATOMEGALY
  4. MELATONIN [Concomitant]
     Active Substance: MELATONIN
  5. INGREZZA [Suspect]
     Active Substance: VALBENAZINE
     Route: 048
  6. PROBIOTIC GUMMY [Concomitant]
     Indication: DYSPEPSIA
  7. METOPROLOL. [Concomitant]
     Active Substance: METOPROLOL
  8. GABAPENTIN. [Concomitant]
     Active Substance: GABAPENTIN
  9. TYLENOL [Concomitant]
     Active Substance: ACETAMINOPHEN
     Indication: NECK PAIN
  10. INGREZZA [Suspect]
     Active Substance: VALBENAZINE
     Route: 048
     Dates: start: 20170922
  11. FINASTERIDE. [Concomitant]
     Active Substance: FINASTERIDE
     Indication: PROSTATOMEGALY
  12. OMEPRAZOLE. [Concomitant]
     Active Substance: OMEPRAZOLE
     Indication: ABDOMINAL DISCOMFORT
  13. INGREZZA [Suspect]
     Active Substance: VALBENAZINE
     Indication: TARDIVE DYSKINESIA
     Route: 048
     Dates: start: 20170915, end: 20170921
  14. BUSPIRONE [Concomitant]
     Active Substance: BUSPIRONE HYDROCHLORIDE

REACTIONS (5)
  - Fatigue [Unknown]
  - Parkinsonian gait [Unknown]
  - Dyskinesia [Unknown]
  - Lethargy [Unknown]
  - Fall [Not Recovered/Not Resolved]

NARRATIVE: CASE EVENT DATE: 2017
